FAERS Safety Report 10799497 (Version 1)
Quarter: 2015Q1

REPORT INFORMATION
  Report Type: Report from Study
  Country: US (occurrence: US)
  Receive Date: 20150216
  Receipt Date: 20150216
  Transmission Date: 20150721
  Serious: No
  Sender: FDA-Public Use
  Company Number: US-ABBVIE-14K-163-1236455-00

PATIENT
  Age: 64 Year
  Sex: Female

DRUGS (5)
  1. HUMIRA [Suspect]
     Active Substance: ADALIMUMAB
     Indication: COLITIS ULCERATIVE
     Dates: start: 20140226
  2. FOLIC ACID. [Concomitant]
     Active Substance: FOLIC ACID
     Indication: VITAMIN SUPPLEMENTATION
  3. LORAZEPAM. [Concomitant]
     Active Substance: LORAZEPAM
     Indication: ANXIETY
     Dosage: TAPERING DOSE DOWNWARD BY 1/2 MG PER MONTH
  4. VITAMIN D [Concomitant]
     Active Substance: CHOLECALCIFEROL
     Indication: VITAMIN D DECREASED
  5. ESTER-C [Concomitant]
     Active Substance: CALCIUM\VITAMINS
     Indication: VITAMIN SUPPLEMENTATION

REACTIONS (11)
  - Injection site reaction [Not Recovered/Not Resolved]
  - Laryngitis [Recovering/Resolving]
  - Drug dose omission [Unknown]
  - Injection site mass [Recovered/Resolved]
  - Productive cough [Unknown]
  - Aphonia [Unknown]
  - Injection site reaction [Not Recovered/Not Resolved]
  - Injection site reaction [Not Recovered/Not Resolved]
  - Haemorrhage [Unknown]
  - Injection site pruritus [Unknown]
  - Injection site urticaria [Unknown]

NARRATIVE: CASE EVENT DATE: 20140325
